FAERS Safety Report 6099574-7 (Version None)
Quarter: 2009Q1

REPORT INFORMATION
  Report Type: 
  Country: None (occurrence: None)
  Receive Date: 20090303
  Receipt Date: 20090217
  Transmission Date: 20090719
  Serious: Yes (Hospitalization)
  Sender: FDA-Public Use
  Company Number: BR-ROCHE-615480

PATIENT
  Age: 17 Year
  Sex: Female

DRUGS (1)
  1. ROACUTAN [Suspect]
     Indication: ACNE
     Route: 048
     Dates: start: 20081001, end: 20081201

REACTIONS (1)
  - INTRACRANIAL PRESSURE INCREASED [None]
